FAERS Safety Report 8209607-7 (Version None)
Quarter: 2012Q1

REPORT INFORMATION
  Report Type: 
  Country: None (occurrence: None)
  Receive Date: 20120314
  Receipt Date: 20120229
  Transmission Date: 20120608
  Serious: Yes (Other)
  Sender: FDA-Public Use
  Company Number: IT-ELI_LILLY_AND_COMPANY-IT201203000478

PATIENT
  Age: 36 Year
  Sex: Male

DRUGS (5)
  1. CYMBALTA [Suspect]
     Indication: PANIC ATTACK
     Dosage: 60 MG, QD
     Dates: start: 20100301
  2. CYMBALTA [Suspect]
     Dosage: 30 MG, QOD
     Dates: start: 20120101
  3. CYMBALTA [Suspect]
     Dosage: 30 MG, QD
     Dates: end: 20120101
  4. FINASTERIDE [Concomitant]
     Indication: ALOPECIA
     Dosage: 1 MG, UNKNOWN
     Dates: start: 20110101
  5. CYMBALTA [Suspect]
     Dosage: 30 MG, EVERY THIRD DAY
     Dates: end: 20120201

REACTIONS (2)
  - RESTLESS LEGS SYNDROME [None]
  - OFF LABEL USE [None]
